FAERS Safety Report 12890978 (Version 1)
Quarter: 2016Q4

REPORT INFORMATION
  Report Type: Spontaneous
  Country: None (occurrence: US)
  Receive Date: 20161025
  Receipt Date: 20161025
  Transmission Date: 20170207
  Serious: Yes (Hospitalization)
  Sender: FDA-Public Use
  Company Number: None

PATIENT
  Age: 45 Year
  Sex: Female

DRUGS (1)
  1. PROCRIT [Suspect]
     Active Substance: ERYTHROPOIETIN
     Indication: CHRONIC KIDNEY DISEASE
     Dosage: 40,000U/M WEEKLY SUBCUTANEOUSLY
     Route: 058
     Dates: start: 20150106, end: 20160810

REACTIONS (2)
  - Haemorrhagic cyst [None]
  - Oophorectomy [None]

NARRATIVE: CASE EVENT DATE: 20161008
